FAERS Safety Report 20458713 (Version 1)
Quarter: 2022Q1

REPORT INFORMATION
  Report Type: Spontaneous
  Country: US (occurrence: US)
  Receive Date: 20220211
  Receipt Date: 20220211
  Transmission Date: 20220424
  Serious: No
  Sender: FDA-Public Use
  Company Number: US-TEVA-2022-US-1999964

PATIENT
  Sex: Female

DRUGS (1)
  1. AIRDUO DIGIHALER [Suspect]
     Active Substance: FLUTICASONE PROPIONATE\SALMETEROL XINAFOATE
     Dosage: STRENGTH: 113 MCG / 14 MCG
     Route: 065

REACTIONS (5)
  - Headache [Unknown]
  - Dry mouth [Unknown]
  - Tongue discolouration [Unknown]
  - Lip swelling [Unknown]
  - Device delivery system issue [Unknown]
